FAERS Safety Report 7993110-3 (Version None)
Quarter: 2011Q4

REPORT INFORMATION
  Report Type: 
  Country: None (occurrence: None)
  Receive Date: 20111219
  Receipt Date: 20110401
  Transmission Date: 20120403
  Serious: No
  Sender: FDA-Public Use
  Company Number: US-ASTRAZENECA-2011SE18795

PATIENT
  Age: 73 Year
  Sex: Female

DRUGS (4)
  1. AMLODIPINE [Concomitant]
  2. CRESTOR [Suspect]
     Route: 048
     Dates: start: 20100101, end: 20100101
  3. METOPROLOL SUCCINATE [Concomitant]
  4. CRESTOR [Suspect]
     Route: 048
     Dates: start: 20100101, end: 20100101

REACTIONS (2)
  - PAIN [None]
  - BONE PAIN [None]
